FAERS Safety Report 6679381-4 (Version None)
Quarter: 2010Q2

REPORT INFORMATION
  Report Type: 
  Country: None (occurrence: None)
  Receive Date: 20100413
  Receipt Date: 20100331
  Transmission Date: 20101027
  Serious: Yes (Hospitalization)
  Sender: FDA-Public Use
  Company Number: GB-ROCHE-655311

PATIENT
  Sex: Male
  Weight: 91 kg

DRUGS (10)
  1. AVASTIN [Suspect]
     Indication: GLIOBLASTOMA MULTIFORME
     Route: 042
     Dates: start: 20090721
  2. NEUPOGEN [Suspect]
     Indication: CHEMOTHERAPY
     Route: 058
  3. NEULASTA [Suspect]
     Indication: CHEMOTHERAPY
     Dosage: SINGLE DOSE RECEIVED 24HRS AFTER CHEMOTHERAPY. FORM: PREFILLED SYRINGE.
     Route: 058
     Dates: start: 20080722
  4. PHENYTOIN [Suspect]
     Indication: DRUG USE FOR UNKNOWN INDICATION
     Route: 065
     Dates: end: 20090814
  5. CARBOPLATIN [Concomitant]
     Indication: GLIOBLASTOMA MULTIFORME
     Route: 042
     Dates: start: 20090721
  6. ONDANSETRON [Concomitant]
     Indication: VOMITING
     Dosage: 8MG BD RECEIVED FOR 2 DAYS PER WEEK
     Route: 048
     Dates: start: 20090721
  7. METOCLOPRAMIDE HYDROCHLORIDE [Concomitant]
     Indication: VOMITING
     Dosage: REPORTED AS METOCLOPROMIDE - REPORTED AS 10 MG TDS PRN
     Route: 048
     Dates: start: 20090721
  8. DEXAMETHASONE [Concomitant]
     Indication: GLIOBLASTOMA MULTIFORME
     Route: 048
  9. VALPROATE SODIUM [Concomitant]
  10. WARFARIN SODIUM [Concomitant]

REACTIONS (8)
  - BODY TEMPERATURE INCREASED [None]
  - CONFUSIONAL STATE [None]
  - CYTOKINE STORM [None]
  - DEEP VEIN THROMBOSIS [None]
  - DELIRIUM [None]
  - DERMATITIS ALLERGIC [None]
  - IMPETIGO [None]
  - PETECHIAE [None]
